FAERS Safety Report 20779744 (Version 1)
Quarter: 2022Q2

REPORT INFORMATION
  Report Type: Spontaneous
  Country: US (occurrence: US)
  Receive Date: 20220503
  Receipt Date: 20220503
  Transmission Date: 20220720
  Serious: No
  Sender: FDA-Public Use
  Company Number: US-PFIZER INC-202200427325

PATIENT
  Sex: Male

DRUGS (3)
  1. PALBOCICLIB [Suspect]
     Active Substance: PALBOCICLIB
     Dosage: UNK
     Dates: end: 20220114
  2. FULVESTRANT [Suspect]
     Active Substance: FULVESTRANT
     Dosage: 50 MG/ML
     Dates: start: 20211217, end: 20211217
  3. FULVESTRANT [Suspect]
     Active Substance: FULVESTRANT
     Dosage: 50 MG/ML
     Dates: start: 20220114, end: 20220114

REACTIONS (2)
  - Hypertransaminasaemia [Not Recovered/Not Resolved]
  - Hepatic enzyme increased [Not Recovered/Not Resolved]
